FAERS Safety Report 23600158 (Version 4)
Quarter: 2024Q2

REPORT INFORMATION
  Report Type: Report from Study
  Country: US (occurrence: US)
  Receive Date: 20240306
  Receipt Date: 20240524
  Transmission Date: 20240715
  Serious: Yes (Hospitalization)
  Sender: FDA-Public Use
  Company Number: US-TEVA-VS-3165377

PATIENT
  Age: 15 Year
  Sex: Male
  Weight: 55 kg

DRUGS (2)
  1. PREDNISOLONE [Suspect]
     Active Substance: PREDNISOLONE
     Indication: Duchenne muscular dystrophy
     Route: 048
     Dates: start: 20180822
  2. FORDADISTROGENE MOVAPARVOVEC [Suspect]
     Active Substance: FORDADISTROGENE MOVAPARVOVEC
     Indication: Duchenne muscular dystrophy
     Dosage: ON 21JUN2018 AT SINGLE DOSE
     Route: 042

REACTIONS (2)
  - Fall [Recovered/Resolved]
  - Femur fracture [Recovering/Resolving]

NARRATIVE: CASE EVENT DATE: 20231229
